FAERS Safety Report 6248821-7 (Version None)
Quarter: 2009Q2

REPORT INFORMATION
  Report Type: 
  Country: None (occurrence: None)
  Receive Date: 20090629
  Receipt Date: 20090617
  Transmission Date: 20091009
  Serious: Yes (Hospitalization, Other)
  Sender: FDA-Public Use
  Company Number: US-ELI_LILLY_AND_COMPANY-US200906004406

PATIENT
  Age: 55 Year
  Sex: Female

DRUGS (4)
  1. CYMBALTA [Suspect]
     Dosage: 30 MG, UNK
     Dates: start: 20071101
  2. CYMBALTA [Suspect]
     Dosage: 60 MG, UNK
     Dates: end: 20071201
  3. WELLBUTRIN [Concomitant]
     Dosage: UNK, UNK
     Dates: start: 20040101
  4. LAMICTAL [Concomitant]
     Dates: start: 20050101

REACTIONS (3)
  - CARDIAC ENZYMES INCREASED [None]
  - CHEST PAIN [None]
  - RETCHING [None]
